FAERS Safety Report 8423037-4 (Version None)
Quarter: 2012Q2

REPORT INFORMATION
  Report Type: 
  Country: None (occurrence: None)
  Receive Date: 20120608
  Receipt Date: 20120525
  Transmission Date: 20120825
  Serious: Yes (Death, Life-Threatening, Other)
  Sender: FDA-Public Use
  Company Number: PL-CELGENEUS-129-50794-12020822

PATIENT
  Sex: Male

DRUGS (9)
  1. VIDAZA [Suspect]
     Route: 065
     Dates: start: 20100926, end: 20101004
  2. VIDAZA [Suspect]
     Route: 065
     Dates: start: 20100524, end: 20100601
  3. VIDAZA [Suspect]
     Route: 065
     Dates: start: 20100729, end: 20100805
  4. VIDAZA [Suspect]
     Route: 065
     Dates: end: 20111101
  5. CYTARABINE [Concomitant]
     Route: 065
  6. VIDAZA [Suspect]
     Route: 065
     Dates: start: 20100826, end: 20100906
  7. ANTIBIOTICS [Concomitant]
     Route: 065
  8. NEUPOGEN [Concomitant]
     Route: 065
  9. DAUNORUBICIN HCL [Concomitant]
     Route: 065

REACTIONS (8)
  - MYALGIA [None]
  - NECK PAIN [None]
  - NO THERAPEUTIC RESPONSE [None]
  - LEUKOCYTOSIS [None]
  - MYELODYSPLASTIC SYNDROME TRANSFORMATION [None]
  - CHEMICAL PERITONITIS [None]
  - ACUTE MYELOID LEUKAEMIA [None]
  - ERYTHEMA [None]
